FAERS Safety Report 10180047 (Version 1)
Quarter: 2014Q2

REPORT INFORMATION
  Report Type: Spontaneous
  Country: US (occurrence: US)
  Receive Date: 20140519
  Receipt Date: 20140519
  Transmission Date: 20141212
  Serious: No
  Sender: FDA-Public Use
  Company Number: US-AMGEN INC.-USASP2013073707

PATIENT
  Age: 58 Year
  Sex: Female

DRUGS (4)
  1. PROLIA [Suspect]
     Indication: OSTEOPOROSIS
     Dosage: UNK
     Route: 065
  2. CALCIUM WITH VITAMIN D             /00944201/ [Concomitant]
     Route: 065
  3. CELEXA                             /00582602/ [Concomitant]
     Dosage: 20 MG, UNK
     Route: 065
  4. ESTRACE [Concomitant]
     Route: 065

REACTIONS (1)
  - C-telopeptide increased [Unknown]
